FAERS Safety Report 5256650-6 (Version None)
Quarter: 2007Q1

REPORT INFORMATION
  Report Type: 
  Country: None (occurrence: None)
  Receive Date: 20070306
  Receipt Date: 20070223
  Transmission Date: 20070707
  Serious: Yes (Other)
  Sender: FDA-Public Use
  Company Number: JP-PFIZER INC-2006127886

PATIENT
  Sex: Male
  Weight: 54 kg

DRUGS (10)
  1. VFEND [Suspect]
     Route: 048
     Dates: start: 20060704, end: 20060718
  2. VFEND [Suspect]
     Route: 048
  3. ASPIRIN [Concomitant]
     Route: 048
  4. TAMSULOSIN HCL [Concomitant]
     Route: 048
     Dates: start: 20060303
  5. BESACOLIN [Concomitant]
     Route: 048
     Dates: start: 20060303
  6. CYANOCOBALAMIN [Concomitant]
     Route: 048
     Dates: start: 20060402
  7. PLETAL [Concomitant]
     Route: 048
     Dates: start: 20060517
  8. AMOBAN [Concomitant]
     Route: 048
     Dates: start: 20060310
  9. GASTER [Concomitant]
     Route: 048
  10. ITRACONAZOLE [Concomitant]
     Route: 048
     Dates: start: 20060608, end: 20060703

REACTIONS (3)
  - HYPOAESTHESIA [None]
  - MUSCULAR WEAKNESS [None]
  - TREMOR [None]
